FAERS Safety Report 7703795-4 (Version None)
Quarter: 2011Q3

REPORT INFORMATION
  Report Type: 
  Country: None (occurrence: None)
  Receive Date: 20110823
  Receipt Date: 20110811
  Transmission Date: 20111222
  Serious: Yes (Other)
  Sender: FDA-Public Use
  Company Number: BR-JNJFOC-20110808290

PATIENT
  Age: 21 Year
  Sex: Female
  Weight: 63.2 kg

DRUGS (1)
  1. MICRONOR [Suspect]
     Indication: CONTRACEPTION
     Route: 048
     Dates: start: 20110713

REACTIONS (5)
  - JAUNDICE [None]
  - OCULAR ICTERUS [None]
  - ABDOMINAL PAIN [None]
  - YELLOW SKIN [None]
  - BLISTER [None]
